FAERS Safety Report 7076284-0 (Version None)
Quarter: 2010Q4

REPORT INFORMATION
  Report Type: 
  Country: None (occurrence: None)
  Receive Date: 20101101
  Receipt Date: 20101013
  Transmission Date: 20110411
  Serious: No
  Sender: FDA-Public Use
  Company Number: US-BAYER-201037394NA

PATIENT
  Sex: Female

DRUGS (1)
  1. NATAZIA [Suspect]
     Indication: CONTRACEPTION
     Route: 048
     Dates: start: 20100831, end: 20100909

REACTIONS (1)
  - PREGNANCY ON ORAL CONTRACEPTIVE [None]
